FAERS Safety Report 20305975 (Version 1)
Quarter: 2022Q1

REPORT INFORMATION
  Report Type: Spontaneous
  Country: US (occurrence: None)
  Receive Date: 20220106
  Receipt Date: 20220106
  Transmission Date: 20220423
  Serious: Yes (Death)
  Sender: FDA-Public Use
  Company Number: None

PATIENT
  Sex: Male

DRUGS (12)
  1. KYPROLIS [Suspect]
     Active Substance: CARFILZOMIB
     Indication: Plasma cell myeloma
     Dosage: INFUSE 112 MG INTRAVENOUSLY ON DAYS 1,8 AND 15 EVERY 28 DAYS FOR CYCLE 2 AND LATER
     Route: 042
     Dates: start: 20211102
  2. ACYCLOVIR [Concomitant]
     Active Substance: ACYCLOVIR
  3. ADVIL [Concomitant]
     Active Substance: IBUPROFEN
  4. AIRBORNE CHW [Concomitant]
  5. BACTRIM DS [Concomitant]
     Active Substance: SULFAMETHOXAZOLE\TRIMETHOPRIM
  6. CALCIUM/MAGN [Concomitant]
  7. DEXAMETHASONE [Concomitant]
     Active Substance: DEXAMETHASONE
  8. KP VITAMIN D [Concomitant]
  9. KYPROLIS [Concomitant]
     Active Substance: CARFILZOMIB
  10. MULTIVITAMIN TAB ADLT 50+ [Concomitant]
  11. TYLENOL [Concomitant]
  12. XARELTO [Concomitant]
     Active Substance: RIVAROXABAN

REACTIONS (1)
  - Death [None]
